FAERS Safety Report 10175164 (Version 1)
Quarter: 2014Q2

REPORT INFORMATION
  Report Type: Spontaneous
  Country: US (occurrence: US)
  Receive Date: 20140515
  Receipt Date: 20140515
  Transmission Date: 20141212
  Serious: No
  Sender: FDA-Public Use
  Company Number: US-VIVUS-2014V1000047

PATIENT
  Age: 41 Year
  Sex: Female
  Weight: 68.55 kg

DRUGS (5)
  1. QSYMIA 3.75MG/23MG [Suspect]
     Indication: PRODUCT USED FOR UNKNOWN INDICATION
     Route: 048
     Dates: start: 20131203, end: 20131216
  2. QSYMIA 3.75MG/23MG [Suspect]
     Route: 048
     Dates: start: 20140108
  3. LEVOXYL [Concomitant]
     Indication: HYPOTHYROIDISM
     Route: 048
     Dates: start: 2000
  4. AMITRIPTYLINE [Concomitant]
     Indication: DEPRESSION
     Route: 048
     Dates: start: 201310
  5. PROPANOLOL [Concomitant]
     Indication: HEART RATE INCREASED
     Route: 048
     Dates: start: 201309

REACTIONS (1)
  - Oedema peripheral [Recovered/Resolved]
